FAERS Safety Report 19232706 (Version 7)
Quarter: 2021Q3

REPORT INFORMATION
  Report Type: Report from Study
  Country: US (occurrence: US)
  Receive Date: 20210507
  Receipt Date: 20210809
  Transmission Date: 20211014
  Serious: No
  Sender: FDA-Public Use
  Company Number: NVSC2021US103353

PATIENT
  Sex: Female

DRUGS (2)
  1. COSENTYX [Suspect]
     Active Substance: SECUKINUMAB
     Dosage: 300 MG, QMO(EVERY WEEK X 5 WEEKS THEN EVERY 4W)
     Route: 058
     Dates: start: 20210505
  2. COSENTYX [Suspect]
     Active Substance: SECUKINUMAB
     Indication: PSORIASIS
     Dosage: 300 MG, QW (QW X 5 WEEKS THEN Q4W) (2 SENSOREADY PENS OF 150 MG)
     Route: 058
     Dates: start: 20210505

REACTIONS (8)
  - Arthralgia [Unknown]
  - Injection site bruising [Unknown]
  - Skin lesion [Unknown]
  - Limb discomfort [Unknown]
  - Asthenia [Unknown]
  - Fatigue [Unknown]
  - Pruritus [Unknown]
  - Contusion [Unknown]
